FAERS Safety Report 6240758-2 (Version None)
Quarter: 2009Q2

REPORT INFORMATION
  Report Type: 
  Country: None (occurrence: None)
  Receive Date: 20090623
  Receipt Date: 20090616
  Transmission Date: 20091009
  Serious: Yes (Other)
  Sender: FDA-Public Use
  Company Number: FR-PFIZER INC-2009227632

PATIENT
  Age: 79 Year

DRUGS (2)
  1. TAHOR [Suspect]
     Dosage: 10 MG, 1X/DAY
     Dates: start: 20040707, end: 20090406
  2. INIPOMP [Concomitant]
     Dosage: UNK

REACTIONS (2)
  - INTERSTITIAL LUNG DISEASE [None]
  - PULMONARY TUBERCULOSIS [None]
